FAERS Safety Report 16266827 (Version 2)
Quarter: 2019Q2

REPORT INFORMATION
  Report Type: Spontaneous
  Country: SE (occurrence: SE)
  Receive Date: 20190502
  Receipt Date: 20190510
  Transmission Date: 20190711
  Serious: No
  Sender: FDA-Public Use
  Company Number: SE-009507513-1904SWE012814

PATIENT
  Age: 93 Year
  Sex: Male

DRUGS (3)
  1. NASONEX [Suspect]
     Active Substance: MOMETASONE FUROATE
     Indication: RHINITIS
     Dosage: UNK
     Dates: start: 20190213, end: 201904
  2. NASONEX [Suspect]
     Active Substance: MOMETASONE FUROATE
     Indication: PRODUCTIVE COUGH
  3. TROMBYL [Concomitant]
     Active Substance: ASPIRIN
     Indication: TRANSIENT ISCHAEMIC ATTACK
     Dosage: UNK

REACTIONS (5)
  - Product prescribing issue [Unknown]
  - Haemoptysis [Not Recovered/Not Resolved]
  - Urinary tract infection [Unknown]
  - Drug ineffective for unapproved indication [Unknown]
  - Product use in unapproved indication [Unknown]

NARRATIVE: CASE EVENT DATE: 2019
